FAERS Safety Report 18358336 (Version 1)
Quarter: 2020Q4

REPORT INFORMATION
  Report Type: Spontaneous
  Country: US (occurrence: US)
  Receive Date: 20201008
  Receipt Date: 20201008
  Transmission Date: 20210114
  Serious: No
  Sender: FDA-Public Use
  Company Number: US-TERSERA THERAPEUTICS LLC-2020TRS001781

PATIENT

DRUGS (2)
  1. VARUBI [Suspect]
     Active Substance: ROLAPITANT
     Indication: PLASMA CELL MYELOMA
     Dosage: 90 MG (TAKE 2 TABLETS BY MOUTH EVERY 2)
     Route: 048
  2. XPOVIO [Suspect]
     Active Substance: SELINEXOR
     Indication: PLASMA CELL MYELOMA
     Dosage: 4 DOSAGE FORM (PILLS), QW (4 PILLS ONCE A WEEK, SATURDAYS IN THE MORNING WITH FOOD)
     Route: 065

REACTIONS (8)
  - Weight decreased [Unknown]
  - Decreased appetite [Recovering/Resolving]
  - White blood cell count abnormal [Unknown]
  - Erythropsia [Unknown]
  - Eye pain [Unknown]
  - Vision blurred [Unknown]
  - Platelet count decreased [Unknown]
  - Dyspnoea exertional [Not Recovered/Not Resolved]
